FAERS Safety Report 22312372 (Version 2)
Quarter: 2023Q2

REPORT INFORMATION
  Report Type: Spontaneous
  Country: CA (occurrence: CA)
  Receive Date: 20230512
  Receipt Date: 20230527
  Transmission Date: 20230722
  Serious: Yes (Other)
  Sender: FDA-Public Use
  Company Number: CA-CELLTRION INC.-2022CA009833

PATIENT

DRUGS (12)
  1. INFLECTRA [Suspect]
     Active Substance: INFLIXIMAB-DYYB
     Indication: Colitis ulcerative
     Dosage: 10 MG/KG, (ROUNDED TO SUPERIOR VIAL) AT WEEKS 0,2,6 THEN EVERY 4 WEEKS
     Route: 042
  2. INFLECTRA [Suspect]
     Active Substance: INFLIXIMAB-DYYB
     Dosage: 10 MG/KG, (ROUNDED TO SUPERIOR VIAL) AT WEEKS 0,2,6 THEN EVERY 4 WEEKS
     Route: 042
     Dates: start: 20220722
  3. INFLECTRA [Suspect]
     Active Substance: INFLIXIMAB-DYYB
     Dosage: 10 MG/KG, (ROUNDED TO SUPERIOR VIAL) AT WEEKS 0,2,6 THEN EVERY 4 WEEKS
     Route: 042
     Dates: start: 20220813
  4. INFLECTRA [Suspect]
     Active Substance: INFLIXIMAB-DYYB
     Dosage: 10 MG/KG, (ROUNDED TO SUPERIOR VIAL) AT WEEKS 0,2,6 THEN EVERY 4 WEEKS
     Route: 042
     Dates: start: 20220908
  5. INFLECTRA [Suspect]
     Active Substance: INFLIXIMAB-DYYB
     Dosage: 10 MG/KG, (ROUNDED TO SUPERIOR VIAL) AT WEEKS 0,2,6 THEN EVERY 4 WEEKS
     Route: 042
     Dates: start: 20221005
  6. INFLECTRA [Suspect]
     Active Substance: INFLIXIMAB-DYYB
     Dosage: 10 MG/KG, (ROUNDED TO SUPERIOR VIAL) AT WEEKS 0,2,6 THEN EVERY 4 WEEKS
     Route: 042
     Dates: start: 20221103
  7. INFLECTRA [Suspect]
     Active Substance: INFLIXIMAB-DYYB
     Dosage: 10 MG/KG, (ROUNDED TO SUPERIOR VIAL) AT WEEKS 0,2,6 THEN EVERY 4 WEEKS
     Route: 042
     Dates: start: 20221205
  8. INFLECTRA [Suspect]
     Active Substance: INFLIXIMAB-DYYB
     Dosage: 10 MG/KG, (ROUNDED TO SUPERIOR VIAL) AT WEEKS 0,2,6 THEN EVERY 4 WEEKS
     Route: 042
     Dates: start: 20230105
  9. INFLECTRA [Suspect]
     Active Substance: INFLIXIMAB-DYYB
     Dosage: 800MG (10MG/KG ROUND UP TO NEXT VIAL) , EVERY 4 WEEKS
     Route: 042
     Dates: start: 20230201
  10. INFLECTRA [Suspect]
     Active Substance: INFLIXIMAB-DYYB
     Dosage: 800MG (10MG/KG ROUND UP TO NEXT VIAL), EVERY 4 WEEKS
     Route: 042
     Dates: start: 20230228
  11. INFLECTRA [Suspect]
     Active Substance: INFLIXIMAB-DYYB
     Dosage: 700 MG (10MG/KG) EVERY 4 WEEKS
     Route: 042
     Dates: start: 20230329
  12. INFLECTRA [Suspect]
     Active Substance: INFLIXIMAB-DYYB
     Dosage: 800 MG, 4 WEEKS(10 MG/KG (ROUND TO SUPERIOR VIAL) AT WEEKS 0,2,6 THEN EVERY 4 WEEKS)
     Route: 042
     Dates: start: 20230426

REACTIONS (9)
  - Condition aggravated [Not Recovered/Not Resolved]
  - Therapeutic response shortened [Unknown]
  - Drug ineffective [Unknown]
  - Off label use [Unknown]
  - Off label use [Unknown]
  - Off label use [Unknown]
  - Intentional product use issue [Unknown]
  - Inappropriate schedule of product administration [Unknown]
  - Weight fluctuation [Unknown]

NARRATIVE: CASE EVENT DATE: 20220101
